FAERS Safety Report 7659903-7 (Version None)
Quarter: 2011Q3

REPORT INFORMATION
  Report Type: 
  Country: None (occurrence: None)
  Receive Date: 20110805
  Receipt Date: 20110729
  Transmission Date: 20111222
  Serious: Yes (Life-Threatening, Hospitalization, Other)
  Sender: FDA-Public Use
  Company Number: US-JNJFOC-20110802147

PATIENT
  Age: 57 Year
  Sex: Male

DRUGS (6)
  1. CYTARABINE [Suspect]
     Indication: ACUTE MYELOID LEUKAEMIA
     Route: 040
     Dates: start: 20110218, end: 20110228
  2. GEMTUZUMAB OZOGAMICIN [Suspect]
     Indication: ACUTE MYELOID LEUKAEMIA
     Route: 042
     Dates: start: 20110218, end: 20110228
  3. DAUNORUBICIN HCL [Suspect]
     Indication: ACUTE MYELOID LEUKAEMIA
     Route: 042
     Dates: start: 20110218, end: 20110228
  4. PLACEBO [Interacting]
     Indication: ACUTE MYELOID LEUKAEMIA
     Route: 048
     Dates: start: 20110218, end: 20110228
  5. ITRACONAZOLE [Suspect]
     Indication: PRODUCT USED FOR UNKNOWN INDICATION
     Route: 065
     Dates: start: 20110222, end: 20110301
  6. LESTAURTINIB [Interacting]
     Indication: ACUTE MYELOID LEUKAEMIA
     Route: 048
     Dates: start: 20110218, end: 20110228

REACTIONS (2)
  - INTESTINAL OBSTRUCTION [None]
  - DRUG INTERACTION [None]
